FAERS Safety Report 8221170-3 (Version None)
Quarter: 2012Q1

REPORT INFORMATION
  Report Type: 
  Country: None (occurrence: None)
  Receive Date: 20120316
  Receipt Date: 20120307
  Transmission Date: 20120608
  Serious: Yes (Death, Hospitalization)
  Sender: FDA-Public Use
  Company Number: 130025 - 1

PATIENT
  Age: 62 Year
  Sex: Male
  Weight: 69 kg

DRUGS (1)
  1. LEUCOVORIN CALCIUM [Suspect]
     Indication: COLORECTAL CANCER METASTATIC
     Dosage: UNK
     Dates: start: 20111024, end: 20120116

REACTIONS (8)
  - ASTHENIA [None]
  - METASTASES TO MENINGES [None]
  - NEOPLASM PROGRESSION [None]
  - DIZZINESS [None]
  - COLORECTAL CANCER METASTATIC [None]
  - CARDIOMEGALY [None]
  - PLEURAL EFFUSION [None]
  - ELECTROCARDIOGRAM ST SEGMENT ELEVATION [None]
